FAERS Safety Report 5213555-4 (Version None)
Quarter: 2007Q1

REPORT INFORMATION
  Report Type: 
  Country: None (occurrence: None)
  Receive Date: 20070119
  Receipt Date: 20070109
  Transmission Date: 20070707
  Serious: Yes (Hospitalization)
  Sender: FDA-Public Use
  Company Number: FR-GILEAD-2007-0011008

PATIENT
  Age: 44 Year
  Sex: Male
  Weight: 80 kg

DRUGS (9)
  1. VIREAD [Suspect]
     Route: 048
     Dates: start: 20040206, end: 20050513
  2. EMTRIVA [Suspect]
  3. TRUVADA [Suspect]
  4. VIRAMUNE [Suspect]
     Route: 048
     Dates: start: 20040206, end: 20050513
  5. NORVIR [Suspect]
     Route: 048
     Dates: start: 20050513
  6. ZIAGEN [Suspect]
     Route: 048
     Dates: start: 20040206
  7. KALETRA [Suspect]
     Route: 048
     Dates: start: 20050513, end: 20051102
  8. TELZIR [Suspect]
     Route: 048
     Dates: start: 20050513, end: 20061220
  9. VIDEX [Concomitant]
     Dates: start: 20060725

REACTIONS (3)
  - DIARRHOEA [None]
  - HYPERCHOLESTEROLAEMIA [None]
  - HYPERTRIGLYCERIDAEMIA [None]
